FAERS Safety Report 15593162 (Version 1)
Quarter: 2018Q4

REPORT INFORMATION
  Report Type: Spontaneous
  Country: JP (occurrence: JP)
  Receive Date: 20181106
  Receipt Date: 20181106
  Transmission Date: 20190205
  Serious: Yes (Other)
  Sender: FDA-Public Use
  Company Number: PHJP2018JP018733

PATIENT
  Age: 70 Year
  Sex: Male

DRUGS (2)
  1. ELTROMBOPAG [Suspect]
     Active Substance: ELTROMBOPAG
     Indication: APLASTIC ANAEMIA
     Dosage: 25 MG, UNK
     Route: 048
     Dates: start: 20171228
  2. ELTROMBOPAG [Suspect]
     Active Substance: ELTROMBOPAG
     Dosage: STARTED AT 25 MG AND INCREASED BY 12.5 MG EVERY TWO WEEKS
     Route: 048

REACTIONS (2)
  - Renal impairment [Unknown]
  - Hepatic function abnormal [Unknown]
